FAERS Safety Report 7574119 (Version 2)
Quarter: 2014Q1

REPORT INFORMATION
  Report Type: Spontaneous
  Country: US (occurrence: US)
  Receive Date: 20100907
  Receipt Date: 20140124
  Transmission Date: 20141002
  Serious: Yes (Other)
  Sender: FDA-Public Use
  Company Number: US-BAYER-201032658NA

PATIENT
  Age: 24 Year
  Sex: Female

DRUGS (4)
  1. YAZ [Suspect]
     Dosage: UNK UNK, UNK
     Route: 048
     Dates: start: 20040605, end: 200711
  2. YASMIN [Suspect]
     Dosage: UNK UNK, UNK
     Route: 048
     Dates: start: 20040605, end: 200711
  3. CIPRO [Concomitant]
     Dosage: 500 MG BID FOR 5 DAYS
  4. DIFLUCAN [Concomitant]
     Dosage: 150 MG ONE TIME DOSE

REACTIONS (2)
  - Gallbladder disorder [Unknown]
  - Cholecystitis chronic [None]
